FAERS Safety Report 8802889 (Version 1)
Quarter: 2012Q4

REPORT INFORMATION
  Report Type: 
  Country: BR (occurrence: BR)
  Receive Date: 20120924
  Receipt Date: 20120924
  Transmission Date: 20130627
  Serious: Yes (Other)
  Sender: FDA-Public Use
  Company Number: BR-PFIZER INC-2012231296

PATIENT
  Age: 60 Year
  Sex: Male

DRUGS (1)
  1. XALATAN [Suspect]
     Dosage: unspecified dosage, 1x/day
     Route: 047
     Dates: start: 2000

REACTIONS (2)
  - Blindness unilateral [Unknown]
  - Accident [Unknown]
